FAERS Safety Report 19065403 (Version 1)
Quarter: 2021Q1

REPORT INFORMATION
  Report Type: Spontaneous
  Country: ZA (occurrence: ZA)
  Receive Date: 20210327
  Receipt Date: 20210327
  Transmission Date: 20210420
  Serious: Yes (Death)
  Sender: FDA-Public Use
  Company Number: ZA-ABBVIE-21K-143-3835490-00

PATIENT

DRUGS (1)
  1. SURVANTA [Suspect]
     Active Substance: BERACTANT
     Indication: PRODUCT USED FOR UNKNOWN INDICATION
     Dosage: SOLUTION
     Route: 039

REACTIONS (1)
  - Death [Fatal]
